FAERS Safety Report 22293173 (Version 3)
Quarter: 2023Q2

REPORT INFORMATION
  Report Type: Report from Study
  Country: US (occurrence: US)
  Receive Date: 20230508
  Receipt Date: 20230605
  Transmission Date: 20230721
  Serious: Yes (Hospitalization, Other)
  Sender: FDA-Public Use
  Company Number: US-INSMED-2023-01226-USAA

PATIENT
  Sex: Female

DRUGS (2)
  1. ARIKAYCE [Suspect]
     Active Substance: AMIKACIN
     Indication: Product used for unknown indication
     Dosage: 590 MILLIGRAM, QD
     Route: 055
     Dates: start: 2019, end: 2023
  2. ARIKAYCE [Suspect]
     Active Substance: AMIKACIN
     Dosage: 590 MILLIGRAM, QD
     Route: 055
     Dates: start: 2023, end: 202304

REACTIONS (6)
  - Hospitalisation [Unknown]
  - Gastric cancer [Not Recovered/Not Resolved]
  - Urinary tract infection [Not Recovered/Not Resolved]
  - Memory impairment [Unknown]
  - Illness [Unknown]
  - Therapy interrupted [Unknown]

NARRATIVE: CASE EVENT DATE: 20230101
